FAERS Safety Report 14647685 (Version 2)
Quarter: 2018Q1

REPORT INFORMATION
  Report Type: Spontaneous
  Country: US (occurrence: US)
  Receive Date: 20180316
  Receipt Date: 20180323
  Transmission Date: 20180509
  Serious: Yes (Other)
  Sender: FDA-Public Use
  Company Number: US-AUROBINDO-AUR-APL-2018-011643

PATIENT
  Sex: Male
  Weight: 18 kg

DRUGS (1)
  1. FLUCONAZOLE ORAL SUSPENSION [Suspect]
     Active Substance: FLUCONAZOLE
     Indication: COCCIDIOIDOMYCOSIS
     Dosage: 5 MILLILITER, ONCE A DAY
     Route: 048
     Dates: start: 20180124

REACTIONS (3)
  - Blindness [Not Recovered/Not Resolved]
  - Excessive eye blinking [Not Recovered/Not Resolved]
  - Product use issue [Unknown]
